FAERS Safety Report 5000981-1 (Version None)
Quarter: 2006Q2

REPORT INFORMATION
  Report Type: 
  Country: None (occurrence: None)
  Receive Date: 20060512
  Receipt Date: 20060502
  Transmission Date: 20061013
  Serious: Yes (Hospitalization)
  Sender: FDA-Public Use
  Company Number: FR-SANOFI-SYNTHELABO-A02200601133

PATIENT
  Age: 42 Year
  Sex: Female
  Weight: 80 kg

DRUGS (7)
  1. DEPAMIDE [Suspect]
     Indication: SCHIZOPHRENIA
     Route: 048
     Dates: end: 20051219
  2. STILNOX [Interacting]
     Indication: INSOMNIA
     Route: 048
  3. HALDOL [Interacting]
     Indication: SCHIZOPHRENIA
     Route: 048
  4. LEVOTHYROX [Interacting]
     Indication: HYPOTHYROIDISM
     Route: 048
     Dates: start: 20051206
  5. LEVOTHYROX [Interacting]
     Route: 048
     Dates: end: 20051206
  6. PREVISCAN [Interacting]
     Indication: DRUG USE FOR UNKNOWN INDICATION
     Route: 048
     Dates: end: 20060112
  7. PREVISCAN [Interacting]
     Route: 048
     Dates: start: 20060113

REACTIONS (3)
  - COAGULATION TIME PROLONGED [None]
  - DRUG INTERACTION [None]
  - INTERNATIONAL NORMALISED RATIO INCREASED [None]
